FAERS Safety Report 11447477 (Version 1)
Quarter: 2015Q3

REPORT INFORMATION
  Report Type: Spontaneous
  Country: US (occurrence: US)
  Receive Date: 20150902
  Receipt Date: 20150902
  Transmission Date: 20151125
  Serious: No
  Sender: FDA-Public Use
  Company Number: US-JNJFOC-20150805564

PATIENT
  Sex: Male
  Weight: 88.45 kg

DRUGS (1)
  1. RISPERDAL [Suspect]
     Active Substance: RISPERIDONE
     Indication: SLEEP DISORDER THERAPY
     Route: 048
     Dates: start: 1995, end: 1997

REACTIONS (3)
  - Drug dose omission [Unknown]
  - Product use issue [Unknown]
  - Inappropriate schedule of drug administration [Unknown]
